FAERS Safety Report 9871456 (Version 1)
Quarter: 2014Q1

REPORT INFORMATION
  Report Type: Report from Study
  Country: DE (occurrence: DE)
  Receive Date: 20140205
  Receipt Date: 20140205
  Transmission Date: 20141002
  Serious: Yes (Death, Other)
  Sender: FDA-Public Use
  Company Number: DE-TAKEDA-2014TUS000777

PATIENT
  Sex: 0

DRUGS (19)
  1. BLINDED ALLOPURINOL [Suspect]
     Indication: TUMOUR LYSIS SYNDROME
     Dosage: 300 MG, QD
     Route: 048
     Dates: start: 20130824, end: 20130901
  2. BLINDED FEBUXOSTAT [Suspect]
     Indication: TUMOUR LYSIS SYNDROME
     Dosage: 300 MG, QD
     Route: 048
     Dates: start: 20130824, end: 20130901
  3. PANTAZOL [Concomitant]
     Dosage: UNK
     Dates: start: 20130822
  4. DEXAMETHASON                       /00016001/ [Concomitant]
     Dosage: 8 MG, QD
     Route: 048
     Dates: start: 20130826, end: 20130901
  5. DEXAMETHASON                       /00016001/ [Concomitant]
     Dosage: 6 MG, BID
     Route: 048
     Dates: start: 20130826, end: 20130901
  6. UNACID                             /00903602/ [Concomitant]
     Indication: PROPHYLAXIS
     Dosage: 3 G, TID
     Route: 042
     Dates: start: 20130822, end: 20130827
  7. NATRIUMBICARBONATE BRAUN [Concomitant]
     Indication: PROPHYLAXIS
     Dosage: 40 ML, QD
     Route: 042
     Dates: start: 20130826, end: 20130905
  8. NATRIUMBICARBONATE BRAUN [Concomitant]
     Dosage: 80 ML, QD
     Route: 042
     Dates: start: 20130826, end: 20130906
  9. NATRIUMBICARBONATE BRAUN [Concomitant]
     Dosage: 100 ML AS REQUIRED
     Route: 042
     Dates: start: 20130826, end: 20130903
  10. AMLODIPIN                          /00972401/ [Concomitant]
     Indication: HYPERTENSION
     Dosage: 5 MG, QD
     Route: 048
     Dates: start: 20130828
  11. KEVATRIL [Concomitant]
     Indication: PROPHYLAXIS
     Dosage: 2 MG, QD
     Route: 042
     Dates: start: 20130828, end: 20130831
  12. MESNA [Concomitant]
     Indication: PROPHYLAXIS
     Dosage: 400 MG, QD
     Route: 042
     Dates: start: 20130829, end: 20130830
  13. RED BLOOD CELLS, CONCENTRATED [Concomitant]
     Indication: ANAEMIA
     Dosage: 2 BAGS (AS REQUIRED)
     Route: 042
     Dates: start: 20130826, end: 20130826
  14. NEUPOGEN [Concomitant]
     Indication: PROPHYLAXIS
     Dosage: 48 QD
     Route: 058
     Dates: start: 20130831, end: 20130903
  15. NEUPOGEN [Concomitant]
     Dosage: 1 QD
     Route: 058
     Dates: start: 20130906
  16. MOVICOL                            /01625101/ [Concomitant]
     Indication: PROPHYLAXIS
     Dosage: UNK
     Route: 048
     Dates: start: 20130904
  17. BIFITERAL [Concomitant]
     Indication: PROPHYLAXIS
     Dosage: 20 ML, QD
     Route: 048
     Dates: start: 20130902, end: 20130902
  18. PLATELETS [Concomitant]
     Indication: PLATELET COUNT DECREASED
     Dosage: 1 DOSAGE FORMS,AS REQUIRED
     Route: 042
     Dates: start: 20130903, end: 20130905
  19. BAYOTENSIN [Concomitant]
     Indication: HYPERTENSION
     Dosage: 1 DF, QD
     Route: 048
     Dates: start: 20130828, end: 20130828

REACTIONS (4)
  - Sepsis [Fatal]
  - Hypersensitivity vasculitis [Fatal]
  - Endocarditis [Fatal]
  - Multi-organ failure [Fatal]
